FAERS Safety Report 12056310 (Version 2)
Quarter: 2016Q1

REPORT INFORMATION
  Report Type: Report from Study
  Country: IT (occurrence: IT)
  Receive Date: 20160209
  Receipt Date: 20160301
  Transmission Date: 20160526
  Serious: Yes (Other)
  Sender: FDA-Public Use
  Company Number: IT-OTSUKA-2016_002910

PATIENT
  Age: 43 Year
  Sex: Female
  Weight: 57.5 kg

DRUGS (3)
  1. IDROCLOROTIAZIDE W/RAMIPRIL [Concomitant]
     Indication: HYPERTENSION
     Dosage: (RAMIPRIL 5MG+ IDROCLOROTIAZIDE 25MG), QD
     Route: 048
     Dates: start: 20080604
  2. TOLVAPTAN [Suspect]
     Active Substance: TOLVAPTAN
     Dosage: 30 MG, QD (IN EVENING)
     Route: 048
     Dates: start: 20150930, end: 20160127
  3. TOLVAPTAN [Suspect]
     Active Substance: TOLVAPTAN
     Indication: CONGENITAL CYSTIC KIDNEY DISEASE
     Dosage: 60 MG, QD (IN MORNING)
     Route: 048
     Dates: start: 20150930, end: 20160127

REACTIONS (1)
  - Cerebellar ischaemia [Recovered/Resolved]

NARRATIVE: CASE EVENT DATE: 20160129
